FAERS Safety Report 5761557-1 (Version None)
Quarter: 2008Q2

REPORT INFORMATION
  Report Type: 
  Country: None (occurrence: None)
  Receive Date: 20080606
  Receipt Date: 20080527
  Transmission Date: 20081010
  Serious: Yes (Other)
  Sender: FDA-Public Use
  Company Number: JP-PFIZER INC-2008045552

PATIENT
  Age: 48 Year
  Sex: Male

DRUGS (3)
  1. NORVASC [Suspect]
     Indication: HYPERTENSION
     Dosage: DAILY DOSE:5MG
     Route: 048
  2. DIOVANE [Suspect]
     Indication: HYPERTENSION
     Dosage: DAILY DOSE:80MG
     Route: 048
     Dates: start: 20080411, end: 20080509
  3. ASPIRIN [Concomitant]
     Indication: CEREBRAL INFARCTION
     Route: 048

REACTIONS (1)
  - FACE OEDEMA [None]
